FAERS Safety Report 11347649 (Version 1)
Quarter: 2015Q3

REPORT INFORMATION
  Report Type: Spontaneous
  Country: US (occurrence: US)
  Receive Date: 20150803
  Receipt Date: 20150803
  Transmission Date: 20151125
  Serious: Yes (Other)
  Sender: FDA-Public Use
  Company Number: US-ELI_LILLY_AND_COMPANY-US200609007305

PATIENT
  Sex: Male
  Weight: 101.2 kg

DRUGS (1)
  1. ZYPREXA [Suspect]
     Active Substance: OLANZAPINE
     Indication: POST-TRAUMATIC STRESS DISORDER
     Dosage: UNK
     Dates: start: 2003

REACTIONS (16)
  - Fall [Unknown]
  - Oedema peripheral [Unknown]
  - Erectile dysfunction [Unknown]
  - Pain [Unknown]
  - Hypoaesthesia [Unknown]
  - Seizure [Unknown]
  - Diabetes mellitus [Unknown]
  - Muscular weakness [Unknown]
  - Radiculopathy [Unknown]
  - Walking aid user [Unknown]
  - Depression [Unknown]
  - Muscle spasms [Unknown]
  - Pain in extremity [Unknown]
  - Intermittent claudication [Unknown]
  - Neuropathy peripheral [Unknown]
  - Off label use [Unknown]
